FAERS Safety Report 6352790-9 (Version None)
Quarter: 2009Q3

REPORT INFORMATION
  Report Type: 
  Country: None (occurrence: None)
  Receive Date: 20090912
  Receipt Date: 20090622
  Transmission Date: 20100115
  Serious: No
  Sender: FDA-Public Use
  Company Number: US-ABBOTT-08P-163-0447016-00

PATIENT
  Sex: Female
  Weight: 112.59 kg

DRUGS (10)
  1. HUMIRA [Suspect]
     Indication: RHEUMATOID ARTHRITIS
     Route: 058
     Dates: start: 20070701
  2. HUMIRA [Suspect]
     Indication: PSORIATIC ARTHROPATHY
  3. METROPOLO 1 [Concomitant]
     Indication: HYPERTENSION
     Route: 048
  4. PHENYTOIN [Concomitant]
     Indication: MOVEMENT DISORDER
     Route: 048
  5. PHENYTOIN [Concomitant]
     Indication: NEUROPATHY PERIPHERAL
  6. METHOTREXATE [Concomitant]
     Indication: PSORIATIC ARTHROPATHY
     Route: 048
  7. ASPIRIN [Concomitant]
     Indication: TACHYCARDIA
     Route: 048
  8. FOLIC ACID [Concomitant]
     Indication: PSORIATIC ARTHROPATHY
     Route: 048
  9. IBUPROFEN [Concomitant]
     Indication: PAIN
     Route: 048
  10. MONTELUKAST [Concomitant]
     Indication: HYPERSENSITIVITY
     Route: 048

REACTIONS (2)
  - ACCIDENTAL NEEDLE STICK [None]
  - CELLULITIS [None]
